FAERS Safety Report 8148076 (Version 4)
Quarter: 2014Q2

REPORT INFORMATION
  Report Type: Spontaneous
  Country: US (occurrence: US)
  Receive Date: 20110922
  Receipt Date: 20140523
  Transmission Date: 20141212
  Serious: Yes (Hospitalization, Other)
  Sender: FDA-Public Use
  Company Number: US-BAYER-2011-086008

PATIENT
  Age: 21 Year
  Sex: Female
  Weight: 78.01 kg

DRUGS (3)
  1. YASMIN [Suspect]
     Indication: MENSTRUAL CYCLE MANAGEMENT
     Dosage: UNK
     Dates: start: 200902, end: 2010
  2. YAZ [Suspect]
     Indication: MENSTRUAL CYCLE MANAGEMENT
     Dosage: UNK
     Dates: start: 200902, end: 2010
  3. CLOMID [Concomitant]
     Dosage: UNK
     Dates: start: 2009

REACTIONS (6)
  - Cholecystitis chronic [None]
  - Cholelithiasis [None]
  - Cholecystectomy [None]
  - Pain [None]
  - Injury [None]
  - Off label use [None]
